FAERS Safety Report 25778236 (Version 2)
Quarter: 2025Q3

REPORT INFORMATION
  Report Type: Spontaneous
  Country: GB (occurrence: GB)
  Receive Date: 20250909
  Receipt Date: 20250925
  Transmission Date: 20251020
  Serious: Yes (Death, Hospitalization)
  Sender: MYLAN
  Company Number: GB-MYLANLABS-2025M1036120

PATIENT
  Age: 61 Year
  Sex: Male

DRUGS (32)
  1. CLOZARIL [Suspect]
     Active Substance: CLOZAPINE
     Indication: Schizophrenia
     Dosage: UNK, BID (300 MILLIGRAM MANE AND 200 MILLIGRAM NOCTE)
     Dates: start: 20010701, end: 20250501
  2. CLOZARIL [Suspect]
     Active Substance: CLOZAPINE
     Dosage: UNK, BID (300 MILLIGRAM MANE AND 200 MILLIGRAM NOCTE)
     Dates: start: 20010701, end: 20250501
  3. CLOZARIL [Suspect]
     Active Substance: CLOZAPINE
     Dosage: UNK, BID (300 MILLIGRAM MANE AND 200 MILLIGRAM NOCTE)
     Route: 048
     Dates: start: 20010701, end: 20250501
  4. CLOZARIL [Suspect]
     Active Substance: CLOZAPINE
     Dosage: UNK, BID (300 MILLIGRAM MANE AND 200 MILLIGRAM NOCTE)
     Route: 048
     Dates: start: 20010701, end: 20250501
  5. CLOZARIL [Suspect]
     Active Substance: CLOZAPINE
     Dosage: UNK, BID (AT LOWER DOSE 250 MILLIGRAM MANE AND 200 MILLIGRAM NOCTE)
     Dates: start: 20250502
  6. CLOZARIL [Suspect]
     Active Substance: CLOZAPINE
     Dosage: UNK, BID (AT LOWER DOSE 250 MILLIGRAM MANE AND 200 MILLIGRAM NOCTE)
     Dates: start: 20250502
  7. CLOZARIL [Suspect]
     Active Substance: CLOZAPINE
     Dosage: UNK, BID (AT LOWER DOSE 250 MILLIGRAM MANE AND 200 MILLIGRAM NOCTE)
     Route: 048
     Dates: start: 20250502
  8. CLOZARIL [Suspect]
     Active Substance: CLOZAPINE
     Dosage: UNK, BID (AT LOWER DOSE 250 MILLIGRAM MANE AND 200 MILLIGRAM NOCTE)
     Route: 048
     Dates: start: 20250502
  9. ATORVASTATIN [Concomitant]
     Active Substance: ATORVASTATIN
     Dosage: 20 MILLIGRAM, QD (ONCE A DAY)
  10. ATORVASTATIN [Concomitant]
     Active Substance: ATORVASTATIN
     Dosage: 20 MILLIGRAM, QD (ONCE A DAY)
     Route: 048
  11. ATORVASTATIN [Concomitant]
     Active Substance: ATORVASTATIN
     Dosage: 20 MILLIGRAM, QD (ONCE A DAY)
     Route: 048
  12. ATORVASTATIN [Concomitant]
     Active Substance: ATORVASTATIN
     Dosage: 20 MILLIGRAM, QD (ONCE A DAY)
  13. CETIRIZINE HYDROCHLORIDE [Concomitant]
     Active Substance: CETIRIZINE HYDROCHLORIDE
     Dosage: 10 NANOGRAM, QD (ONCE A DAY)
  14. CETIRIZINE HYDROCHLORIDE [Concomitant]
     Active Substance: CETIRIZINE HYDROCHLORIDE
     Dosage: 10 NANOGRAM, QD (ONCE A DAY)
     Route: 048
  15. CETIRIZINE HYDROCHLORIDE [Concomitant]
     Active Substance: CETIRIZINE HYDROCHLORIDE
     Dosage: 10 NANOGRAM, QD (ONCE A DAY)
     Route: 048
  16. CETIRIZINE HYDROCHLORIDE [Concomitant]
     Active Substance: CETIRIZINE HYDROCHLORIDE
     Dosage: 10 NANOGRAM, QD (ONCE A DAY)
  17. FUROSEMIDE [Concomitant]
     Active Substance: FUROSEMIDE
     Dosage: 40 MILLIGRAM, AM (MANE)
  18. FUROSEMIDE [Concomitant]
     Active Substance: FUROSEMIDE
     Dosage: 40 MILLIGRAM, AM (MANE)
     Route: 048
  19. FUROSEMIDE [Concomitant]
     Active Substance: FUROSEMIDE
     Dosage: 40 MILLIGRAM, AM (MANE)
     Route: 048
  20. FUROSEMIDE [Concomitant]
     Active Substance: FUROSEMIDE
     Dosage: 40 MILLIGRAM, AM (MANE)
  21. SCOPOLAMINE HYDROBROMIDE [Concomitant]
     Active Substance: SCOPOLAMINE HYDROBROMIDE
     Dosage: 300 MICROGRAM, PM (NOCTE)
  22. SCOPOLAMINE HYDROBROMIDE [Concomitant]
     Active Substance: SCOPOLAMINE HYDROBROMIDE
     Dosage: 300 MICROGRAM, PM (NOCTE)
     Route: 048
  23. SCOPOLAMINE HYDROBROMIDE [Concomitant]
     Active Substance: SCOPOLAMINE HYDROBROMIDE
     Dosage: 300 MICROGRAM, PM (NOCTE)
     Route: 048
  24. SCOPOLAMINE HYDROBROMIDE [Concomitant]
     Active Substance: SCOPOLAMINE HYDROBROMIDE
     Dosage: 300 MICROGRAM, PM (NOCTE)
  25. ALBUTEROL [Concomitant]
     Active Substance: ALBUTEROL
  26. ALBUTEROL [Concomitant]
     Active Substance: ALBUTEROL
     Route: 055
  27. ALBUTEROL [Concomitant]
     Active Substance: ALBUTEROL
     Route: 055
  28. ALBUTEROL [Concomitant]
     Active Substance: ALBUTEROL
  29. VALPROATE SODIUM [Concomitant]
     Active Substance: VALPROATE SODIUM
     Dosage: 400 MILLIGRAM, BID
  30. VALPROATE SODIUM [Concomitant]
     Active Substance: VALPROATE SODIUM
     Dosage: 400 MILLIGRAM, BID
     Route: 048
  31. VALPROATE SODIUM [Concomitant]
     Active Substance: VALPROATE SODIUM
     Dosage: 400 MILLIGRAM, BID
     Route: 048
  32. VALPROATE SODIUM [Concomitant]
     Active Substance: VALPROATE SODIUM
     Dosage: 400 MILLIGRAM, BID

REACTIONS (4)
  - Neoplasm malignant [Fatal]
  - Lung cancer metastatic [Unknown]
  - Hepatic function abnormal [Not Recovered/Not Resolved]
  - Differential white blood cell count abnormal [Recovered/Resolved]

NARRATIVE: CASE EVENT DATE: 20250424
